FAERS Safety Report 25943082 (Version 1)
Quarter: 2025Q4

REPORT INFORMATION
  Report Type: Spontaneous
  Country: US (occurrence: None)
  Receive Date: 20251020
  Receipt Date: 20251020
  Transmission Date: 20260117
  Serious: Yes (Hospitalization)
  Sender: FDA-CTU
  Company Number: None

PATIENT
  Age: 72 Year
  Sex: Female

DRUGS (2)
  1. TAVNEOS [Suspect]
     Active Substance: AVACOPAN
     Dosage: FREQUENCY : TWICE A DAY;?
     Route: 048
  2. RITUXIMAB [Suspect]
     Active Substance: RITUXIMAB

REACTIONS (8)
  - Muscle spasms [None]
  - Fatigue [None]
  - Gait disturbance [None]
  - Peripheral swelling [None]
  - Blood pressure increased [None]
  - Asthenia [None]
  - Joint swelling [None]
  - Fall [None]

NARRATIVE: CASE EVENT DATE: 20251020
